FAERS Safety Report 9099125 (Version 1)
Quarter: 2013Q1

REPORT INFORMATION
  Report Type: Spontaneous
  Country: US (occurrence: US)
  Receive Date: 20130214
  Receipt Date: 20130214
  Transmission Date: 20140127
  Serious: No
  Sender: FDA-Public Use
  Company Number: US-COVIDIEN/TYCO HEALTHCARE/MALLINCKRODT-T201204386

PATIENT
  Age: 52 Year
  Sex: Female
  Weight: 47.17 kg

DRUGS (7)
  1. FENTANYL TRANSDERMAL SYSTEM [Suspect]
     Dosage: 100 UG/HR, 1 FTS Q 3 DAYS
     Route: 062
  2. GABAPENTIN [Concomitant]
     Indication: NEUROPATHY PERIPHERAL
     Dosage: UNK
  3. VENTOLIN                           /00139501/ [Concomitant]
     Indication: ASTHMA
     Dosage: UNK
  4. BABY ASPIRIN [Concomitant]
     Indication: PROPHYLAXIS
     Dosage: UNK
  5. DIAZEPAM [Concomitant]
     Indication: ANXIETY
     Dosage: UNK, PRN
  6. PREMARIN [Concomitant]
     Indication: HORMONE REPLACEMENT THERAPY
     Dosage: UNK
  7. DILAUDID [Concomitant]
     Indication: BREAKTHROUGH PAIN
     Dosage: UNK, PRN

REACTIONS (3)
  - Oral mucosal blistering [Not Recovered/Not Resolved]
  - Withdrawal syndrome [Not Recovered/Not Resolved]
  - Application site erythema [Recovering/Resolving]
